FAERS Safety Report 6160693-8 (Version None)
Quarter: 2009Q2

REPORT INFORMATION
  Report Type: 
  Country: None (occurrence: None)
  Receive Date: 20090420
  Receipt Date: 20090409
  Transmission Date: 20091009
  Serious: Yes (Other)
  Sender: FDA-Public Use
  Company Number: US-PFIZER INC-2008045928

PATIENT
  Sex: Female
  Weight: 66.818 kg

DRUGS (6)
  1. LIPITOR [Suspect]
     Route: 048
  2. MULTI-VITAMINS [Concomitant]
  3. ADVIL [Concomitant]
  4. FOLIC ACID [Concomitant]
  5. EFFEXOR [Concomitant]
  6. THYROID TAB [Concomitant]

REACTIONS (1)
  - HEPATITIS B [None]
